FAERS Safety Report 19477704 (Version 2)
Quarter: 2021Q3

REPORT INFORMATION
  Report Type: Spontaneous
  Country: US (occurrence: US)
  Receive Date: 20210630
  Receipt Date: 20210711
  Transmission Date: 20211014
  Serious: No
  Sender: FDA-Public Use
  Company Number: US-ORGANON-O2106USA001699

PATIENT
  Age: 18 Year
  Sex: Female
  Weight: 43.09 kg

DRUGS (1)
  1. NEXPLANON [Suspect]
     Active Substance: ETONOGESTREL
     Dosage: 1 ROD; LEFT ARM
     Route: 059
     Dates: start: 20210617

REACTIONS (3)
  - Product quality issue [Unknown]
  - Complication of device insertion [Unknown]
  - No adverse event [Unknown]

NARRATIVE: CASE EVENT DATE: 20210617
